FAERS Safety Report 12394204 (Version 1)
Quarter: 2016Q2

REPORT INFORMATION
  Report Type: Spontaneous
  Country: CZ (occurrence: CZ)
  Receive Date: 20160523
  Receipt Date: 20160523
  Transmission Date: 20160815
  Serious: Yes (Death, Other)
  Sender: FDA-Public Use
  Company Number: CZ-SA-2016SA096879

PATIENT
  Age: 38 Year
  Sex: Female

DRUGS (3)
  1. BEVACIZUMAB [Suspect]
     Active Substance: BEVACIZUMAB
     Indication: COLORECTAL CANCER METASTATIC
     Route: 042
     Dates: start: 20141216, end: 2015
  2. OXALIPLATIN. [Suspect]
     Active Substance: OXALIPLATIN
     Indication: COLORECTAL CANCER METASTATIC
     Route: 042
     Dates: start: 20141216, end: 2015
  3. CAPECITABINE. [Suspect]
     Active Substance: CAPECITABINE
     Indication: COLORECTAL CANCER METASTATIC
     Route: 048
     Dates: start: 20141216, end: 2015

REACTIONS (3)
  - Bone marrow toxicity [Unknown]
  - Malignant neoplasm progression [Fatal]
  - Mucosal toxicity [Unknown]

NARRATIVE: CASE EVENT DATE: 2014
